FAERS Safety Report 5306164-X (Version None)
Quarter: 2007Q2

REPORT INFORMATION
  Report Type: 
  Country: None (occurrence: None)
  Receive Date: 20070417
  Receipt Date: 20070402
  Transmission Date: 20071010
  Serious: Yes (Hospitalization, Other)
  Sender: FDA-Public Use
  Company Number: SPV1-2007-01404

PATIENT
  Age: 40 Year
  Sex: Male

DRUGS (13)
  1. FOSRENOL [Suspect]
     Indication: HYPERPHOSPHATAEMIA
     Dosage: 500 MG, 3X/DAY:  TID, ORAL
     Route: 048
     Dates: start: 20070301, end: 20070318
  2. TEGRETOL [Concomitant]
  3. TITRALAC /00183701/ (AMINOACETIC ACID, CALCIUM CARBONATE) [Concomitant]
  4. LIPITOR [Concomitant]
  5. PLAVIX [Concomitant]
  6. TENORMIN [Concomitant]
  7. MIMPARA /01735301/ (CINACALCET) [Concomitant]
  8. MEGA-CALCIUM (CALCIUM CARBONATE, CALCIUM LACTOGLUCONATE) [Concomitant]
  9. NEORECORMON (EPOETIN BETA) [Concomitant]
  10. COSMOFER /01172101/ (IRON DEXTRAN) [Concomitant]
  11. SUPERAMIN (LEVOCARNITINE) [Concomitant]
  12. NEUROBION /00091901/ (HYDROXOCOBALAMIN, PYRIDOXINE HYDROCHLORIDE, THIA [Concomitant]
  13. ZELMAR (LORATADINE) [Concomitant]

REACTIONS (1)
  - PANCREATITIS [None]
